FAERS Safety Report 20000864 (Version 1)
Quarter: 2021Q4

REPORT INFORMATION
  Report Type: Spontaneous
  Country: US (occurrence: US)
  Receive Date: 20211026
  Receipt Date: 20211026
  Transmission Date: 20220303
  Serious: Yes (Other)
  Sender: FDA-Public Use
  Company Number: None

PATIENT
  Age: 42 Year
  Sex: Male
  Weight: 82.55 kg

DRUGS (2)
  1. HUMIRA [Suspect]
     Active Substance: ADALIMUMAB
     Indication: Colitis ulcerative
     Dosage: ?          OTHER DOSE:1 PEN;
     Route: 058
     Dates: start: 20210127, end: 20210815
  2. HUMIRA [Suspect]
     Active Substance: ADALIMUMAB
     Indication: Colitis

REACTIONS (4)
  - Psoriasis [None]
  - Psoriasis [None]
  - Psoriasis [None]
  - Psoriasis [None]

NARRATIVE: CASE EVENT DATE: 20211026
